FAERS Safety Report 8488663-5 (Version None)
Quarter: 2012Q3

REPORT INFORMATION
  Report Type: 
  Country: None (occurrence: None)
  Receive Date: 20120705
  Receipt Date: 20120629
  Transmission Date: 20120928
  Serious: Yes (Hospitalization, Other)
  Sender: FDA-Public Use
  Company Number: US-PFIZER INC-2012101438

PATIENT
  Sex: Female

DRUGS (5)
  1. TRAMADOL [Concomitant]
     Indication: PAIN
     Dosage: UNK
     Dates: start: 20030101
  2. SYNTHROID [Concomitant]
     Indication: HYPOTHYROIDISM
     Dosage: UNK
     Dates: start: 20040101
  3. OXYCODONE [Concomitant]
     Indication: PAIN
     Dosage: UNK
     Dates: start: 20030101
  4. CHANTIX [Suspect]
     Indication: SMOKING CESSATION THERAPY
     Dosage: 0.5MG/1MG
     Dates: start: 20080401, end: 20080601
  5. RELAFEN [Concomitant]
     Indication: PAIN
     Dosage: UNK
     Dates: start: 20030101

REACTIONS (9)
  - NERVOUS SYSTEM DISORDER [None]
  - DELUSION [None]
  - DEPRESSION [None]
  - ANXIETY [None]
  - ABNORMAL BEHAVIOUR [None]
  - AMNESIA [None]
  - PARANOIA [None]
  - SUICIDAL IDEATION [None]
  - PSYCHOTIC DISORDER [None]
